FAERS Safety Report 22136897 (Version 2)
Quarter: 2023Q2

REPORT INFORMATION
  Report Type: Report from Study
  Country: US (occurrence: US)
  Receive Date: 20230324
  Receipt Date: 20230612
  Transmission Date: 20230721
  Serious: Yes (Other)
  Sender: FDA-Public Use
  Company Number: US-TG THERAPEUTICS INC.-TGT002726

PATIENT
  Age: 54 Year
  Sex: Female
  Weight: 56.689 kg

DRUGS (22)
  1. UBLITUXIMAB [Suspect]
     Active Substance: UBLITUXIMAB
     Indication: Relapsing multiple sclerosis
     Dosage: 150 MG WEEK 1 DAY 1 AND 450 MG THEREAFTER, EVERY 24 WEEKS
     Route: 042
     Dates: start: 20180329
  2. QUINAPRIL [Concomitant]
     Active Substance: QUINAPRIL
     Indication: Hypertension
     Dosage: 40 MILLIGRAM, QD
     Route: 048
     Dates: start: 2005
  3. ATORVASTATIN [Concomitant]
     Active Substance: ATORVASTATIN
     Indication: Hypercholesterolaemia
     Dosage: 20 MILLIGRAM, QD
     Route: 048
     Dates: start: 2005
  4. CLONAZEPAM [Concomitant]
     Active Substance: CLONAZEPAM
     Indication: Anxiety
     Dosage: 0. MILLIGRAM, PRN
     Route: 048
     Dates: start: 2014
  5. LOVAZA [Concomitant]
     Active Substance: OMEGA-3-ACID ETHYL ESTERS
     Indication: Hypercholesterolaemia
     Dosage: 2 GRAM, BID
     Route: 048
     Dates: start: 2005
  6. ALEVE [Concomitant]
     Active Substance: NAPROXEN SODIUM
     Indication: Headache
     Dosage: 440 MILLIGRAM, PRN
     Route: 048
     Dates: start: 1998
  7. ADVIL [Concomitant]
     Active Substance: IBUPROFEN
     Indication: Headache
     Dosage: 400 MILLIGRAM, PRN
     Route: 048
     Dates: start: 1998
  8. ASPIRIN [Concomitant]
     Active Substance: ASPIRIN
     Indication: Prophylaxis
     Dosage: 81 MILLIGRAM, QD
     Route: 048
     Dates: start: 2015
  9. ZYRTEC [Concomitant]
     Active Substance: CETIRIZINE HYDROCHLORIDE
     Indication: Rhinitis allergic
     Dosage: 10 MILLIGRAM, QD
     Route: 048
     Dates: start: 20181204
  10. TYLENOL [Concomitant]
     Active Substance: ACETAMINOPHEN
     Indication: Arthralgia
     Dosage: 1000 MILLIGRAM, PRN
     Route: 048
     Dates: start: 20191215
  11. MIRENA [Concomitant]
     Active Substance: LEVONORGESTREL
     Indication: Contraception
     Dosage: 20 MILLIGRAM, QD
     Route: 048
     Dates: start: 20200903
  12. OZEMPIC [Concomitant]
     Active Substance: SEMAGLUTIDE
     Indication: Diabetes mellitus
     Dosage: 1 MILLIGRAM
     Route: 058
     Dates: start: 20211027
  13. SYNTHROID [Concomitant]
     Active Substance: LEVOTHYROXINE SODIUM
     Indication: Hypothyroidism
     Dosage: 0.1 MILLIGRAM, 5 DAYS PER WEEK
     Route: 048
     Dates: start: 20220402
  14. GABAPENTIN [Concomitant]
     Active Substance: GABAPENTIN
     Indication: Anxiety
     Dosage: 100 MILLIGRAM, QD
     Route: 048
     Dates: start: 20220329
  15. TRAZODONE [Concomitant]
     Active Substance: TRAZODONE HYDROCHLORIDE
     Indication: Anxiety
     Dosage: 50 MILLIGRAM, QD
     Route: 048
     Dates: start: 20220514
  16. DEXTROAMPHETAMINE [Concomitant]
     Active Substance: DEXTROAMPHETAMINE
     Indication: Fatigue
  17. FOLIC ACID [Concomitant]
     Active Substance: FOLIC ACID
     Indication: Supplementation therapy
     Dosage: 400 MICROGRAM, QD
     Dates: start: 20220629
  18. ZOFRAN [Concomitant]
     Active Substance: ONDANSETRON HYDROCHLORIDE
     Indication: Nausea
     Dosage: 4 MILLIGRAM, QD
     Dates: start: 20220922
  19. LEXAPRO [Concomitant]
     Active Substance: ESCITALOPRAM OXALATE
     Indication: Persistent depressive disorder
     Dosage: 30 MILLIGRAM, QD
     Route: 048
     Dates: start: 202205
  20. FLONASE [Concomitant]
     Active Substance: FLUTICASONE PROPIONATE
     Indication: Product used for unknown indication
  21. XYZAL [Concomitant]
     Active Substance: LEVOCETIRIZINE DIHYDROCHLORIDE
     Indication: Product used for unknown indication
     Dosage: 5 MILLIGRAM
  22. ZEMBRACE SYMTOUCH [Concomitant]
     Active Substance: SUMATRIPTAN SUCCINATE
     Indication: Product used for unknown indication

REACTIONS (1)
  - Basal cell carcinoma [Recovered/Resolved]

NARRATIVE: CASE EVENT DATE: 20230228
